FAERS Safety Report 4432386-6 (Version None)
Quarter: 2004Q3

REPORT INFORMATION
  Report Type: 
  Country: None (occurrence: None)
  Receive Date: 20040825
  Receipt Date: 20040816
  Transmission Date: 20050211
  Serious: Yes (Other)
  Sender: FDA-Public Use
  Company Number: BR-GLAXOSMITHKLINE-A0523175A

PATIENT
  Age: 27 Year
  Sex: Male
  Weight: 69 kg

DRUGS (2)
  1. LEUKERAN [Suspect]
     Indication: DRUG USE FOR UNKNOWN INDICATION
     Dosage: 2MG TWICE PER DAY
     Route: 048
     Dates: start: 20040104
  2. PREDNISONE [Concomitant]

REACTIONS (2)
  - DIZZINESS [None]
  - URINARY INCONTINENCE [None]
